FAERS Safety Report 9761779 (Version 2)
Quarter: 2014Q1

REPORT INFORMATION
  Report Type: Spontaneous
  Country: US (occurrence: US)
  Receive Date: 20131216
  Receipt Date: 20140219
  Transmission Date: 20141002
  Serious: No
  Sender: FDA-Public Use
  Company Number: US-BIOGENIDEC-2013BI109312

PATIENT
  Age: 50 Year
  Sex: Female
  Weight: 68 kg

DRUGS (20)
  1. TECFIDERA [Suspect]
     Indication: MULTIPLE SCLEROSIS
     Route: 048
  2. TECFIDERA [Suspect]
     Indication: MULTIPLE SCLEROSIS
     Route: 048
  3. TECFIDERA [Suspect]
     Indication: MULTIPLE SCLEROSIS
     Route: 048
  4. TECFIDERA [Suspect]
     Indication: MULTIPLE SCLEROSIS
     Route: 048
     Dates: start: 20130926, end: 20131118
  5. AMANTADINE [Concomitant]
  6. ZOLOFT [Concomitant]
  7. ZOLOFT [Concomitant]
  8. MIRAPEX [Concomitant]
  9. MIRAPEX [Concomitant]
  10. BACLOFEN [Concomitant]
  11. MAGNESIUM [Concomitant]
  12. AMPYRA [Concomitant]
     Indication: GAIT DISTURBANCE
     Dates: start: 201109
  13. AMPYRA [Concomitant]
     Indication: GAIT DISTURBANCE
     Dates: start: 201109
  14. OXYBUTYNIN [Concomitant]
  15. IRON [Concomitant]
  16. ASPIRIN BUFF [Concomitant]
  17. VITAMIN C [Concomitant]
  18. CALCIUM+D [Concomitant]
  19. IBUPROFEN [Concomitant]
  20. BETASERON [Concomitant]
     Indication: MULTIPLE SCLEROSIS
     Route: 058
     Dates: end: 20130926

REACTIONS (9)
  - Middle insomnia [Not Recovered/Not Resolved]
  - Central nervous system lesion [Not Recovered/Not Resolved]
  - Coordination abnormal [Not Recovered/Not Resolved]
  - Fall [Recovered/Resolved]
  - Altered visual depth perception [Not Recovered/Not Resolved]
  - Nausea [Not Recovered/Not Resolved]
  - Vomiting [Not Recovered/Not Resolved]
  - Diarrhoea [Unknown]
  - Prescribed underdose [Unknown]
